FAERS Safety Report 13953574 (Version 3)
Quarter: 2018Q1

REPORT INFORMATION
  Report Type: Spontaneous
  Country: US (occurrence: US)
  Receive Date: 20170911
  Receipt Date: 20180226
  Transmission Date: 20180508
  Serious: Yes (Other)
  Sender: FDA-Public Use
  Company Number: US-PFIZER INC-2017388183

PATIENT
  Sex: Female

DRUGS (1)
  1. ESTRING [Suspect]
     Active Substance: ESTRADIOL
     Dosage: 2 MG, UNK

REACTIONS (5)
  - Ligament sprain [Unknown]
  - Foot fracture [Unknown]
  - Head injury [Unknown]
  - Concussion [Unknown]
  - Fall [Unknown]
